FAERS Safety Report 9113166 (Version 1)
Quarter: 2013Q1

REPORT INFORMATION
  Report Type: Spontaneous
  Country: US (occurrence: US)
  Receive Date: 20130211
  Receipt Date: 20130211
  Transmission Date: 20140127
  Serious: No
  Sender: FDA-Public Use
  Company Number: US-ASTRAZENECA-2013SE08312

PATIENT
  Sex: Female

DRUGS (1)
  1. SEROQUEL [Suspect]
     Indication: INSOMNIA
     Route: 048
     Dates: start: 20130131, end: 20130131

REACTIONS (6)
  - Agitation [Unknown]
  - Hyperhidrosis [Unknown]
  - Muscle spasms [Unknown]
  - Blepharospasm [Unknown]
  - Tremor [Unknown]
  - Off label use [Unknown]
